FAERS Safety Report 21052152 (Version 1)
Quarter: 2022Q3

REPORT INFORMATION
  Report Type: Spontaneous
  Country: US (occurrence: None)
  Receive Date: 20220706
  Receipt Date: 20220706
  Transmission Date: 20221027
  Serious: Yes (Hospitalization)
  Sender: FDA-Public Use
  Company Number: None

PATIENT
  Sex: Male

DRUGS (1)
  1. CAPECITABINE [Suspect]
     Active Substance: CAPECITABINE
     Indication: Rectal cancer
     Dosage: OTHER QUANTITY : 2000MG AM/1500MGPM;?FREQUENCY : TWICE A DAY;?
     Route: 048
     Dates: start: 20220620

REACTIONS (6)
  - Cardiac disorder [None]
  - Limb discomfort [None]
  - Chest discomfort [None]
  - Facial discomfort [None]
  - Pain in jaw [None]
  - Facial pain [None]
